FAERS Safety Report 9895758 (Version 1)
Quarter: 2014Q1

REPORT INFORMATION
  Report Type: Spontaneous
  Country: US (occurrence: US)
  Receive Date: 20140213
  Receipt Date: 20140213
  Transmission Date: 20141002
  Serious: No
  Sender: FDA-Public Use
  Company Number: US-BRISTOL-MYERS SQUIBB COMPANY-19435403

PATIENT
  Age: 48 Year
  Sex: Female
  Weight: 74.83 kg

DRUGS (7)
  1. ORENCIA [Suspect]
     Route: 058
     Dates: start: 20130903
  2. ADVIL [Concomitant]
  3. FLONASE [Concomitant]
  4. FOLIC ACID [Concomitant]
  5. METHOTREXATE [Concomitant]
  6. PREDNISONE [Concomitant]
  7. PREVACID [Concomitant]

REACTIONS (1)
  - Back pain [Unknown]
